FAERS Safety Report 14381432 (Version 1)
Quarter: 2018Q1

REPORT INFORMATION
  Report Type: Spontaneous
  Country: US (occurrence: US)
  Receive Date: 20180111
  Receipt Date: 20180111
  Transmission Date: 20180509
  Serious: No
  Sender: FDA-Public Use
  Company Number: None

PATIENT
  Age: 72 Year
  Sex: Female

DRUGS (1)
  1. IBRANCE [Suspect]
     Active Substance: PALBOCICLIB
     Indication: BREAST CANCER
     Route: 048
     Dates: start: 20180102, end: 20180111

REACTIONS (3)
  - Haemoglobin decreased [None]
  - Platelet count decreased [None]
  - Fatigue [None]

NARRATIVE: CASE EVENT DATE: 20180102
